FAERS Safety Report 7353131-0 (Version None)
Quarter: 2011Q1

REPORT INFORMATION
  Report Type: 
  Country: None (occurrence: None)
  Receive Date: 20110315
  Receipt Date: 20110217
  Transmission Date: 20110831
  Serious: No
  Sender: FDA-Public Use
  Company Number: US-B.I. PHARMACEUTICALS,INC./RIDGEFIELD-2011-BP-06013BP

PATIENT
  Sex: Male

DRUGS (2)
  1. ZANTAC 150 [Suspect]
     Indication: DYSPEPSIA
  2. ZANTAC 150 [Suspect]
     Indication: GASTROOESOPHAGEAL REFLUX DISEASE

REACTIONS (1)
  - DRUG INEFFECTIVE [None]
